FAERS Safety Report 4513295-0 (Version None)
Quarter: 2004Q4

REPORT INFORMATION
  Report Type: 
  Country: None (occurrence: None)
  Receive Date: 20041130
  Receipt Date: 20041115
  Transmission Date: 20050328
  Serious: Yes (Other)
  Sender: FDA-Public Use
  Company Number: PHEH2004US12334

PATIENT
  Age: 78 Year
  Sex: Female

DRUGS (1)
  1. MIACALCIN [Suspect]
     Indication: OSTEOPOROSIS
     Dosage: 200 IU, QD
     Dates: start: 20010801, end: 20041001

REACTIONS (4)
  - AGEUSIA [None]
  - ANOSMIA [None]
  - DRUG INEFFECTIVE [None]
  - RIB FRACTURE [None]
